FAERS Safety Report 11797012 (Version 1)
Quarter: 2015Q4

REPORT INFORMATION
  Report Type: Spontaneous
  Country: US (occurrence: None)
  Receive Date: 20151202
  Receipt Date: 20151202
  Transmission Date: 20160305
  Serious: No
  Sender: FDA-Public Use
  Company Number: None

PATIENT
  Age: 56 Year
  Sex: Female
  Weight: 72.58 kg

DRUGS (8)
  1. LORAZAPAM [Concomitant]
     Active Substance: LORAZEPAM
  2. BREATHE HERBAL ESSENTIAL OIL [Concomitant]
  3. COPAXONE [Suspect]
     Active Substance: GLATIRAMER ACETATE
     Indication: MULTIPLE SCLEROSIS
     Dosage: 1 SHOT 40 MG/ML  GIVEN INTO/UNDER THE SKIN
  4. VALTREX [Concomitant]
     Active Substance: VALACYCLOVIR HYDROCHLORIDE
  5. VITAMIN D [Concomitant]
     Active Substance: CHOLECALCIFEROL
  6. BUSPIRONE [Concomitant]
     Active Substance: BUSPIRONE HYDROCHLORIDE
  7. CPAP [Concomitant]
     Active Substance: DEVICE
  8. LORATATDINE [Concomitant]

REACTIONS (7)
  - Stupor [None]
  - Therapy change [None]
  - Thinking abnormal [None]
  - Cognitive disorder [None]
  - Memory impairment [None]
  - Coordination abnormal [None]
  - Apathy [None]

NARRATIVE: CASE EVENT DATE: 20150301
